FAERS Safety Report 9807081 (Version 2)
Quarter: 2015Q1

REPORT INFORMATION
  Report Type: Report from Study
  Country: US (occurrence: US)
  Receive Date: 20140110
  Receipt Date: 20150326
  Transmission Date: 20150721
  Serious: Yes (Death)
  Sender: FDA-Public Use
  Company Number: US-ROCHE-1331327

PATIENT
  Age: 66 Year
  Sex: Female

DRUGS (12)
  1. AVASTIN [Suspect]
     Active Substance: BEVACIZUMAB
     Indication: PRODUCT USED FOR UNKNOWN INDICATION
     Route: 065
  2. VIGAMOX [Concomitant]
     Active Substance: MOXIFLOXACIN HYDROCHLORIDE
     Dosage: INSTILLED
     Route: 065
  3. LUCENTIS [Suspect]
     Active Substance: RANIBIZUMAB
     Indication: DIABETIC RETINOPATHY
     Route: 050
     Dates: start: 20080718
  4. LUCENTIS [Suspect]
     Active Substance: RANIBIZUMAB
     Indication: DIABETIC RETINAL OEDEMA
  5. LUCENTIS [Suspect]
     Active Substance: RANIBIZUMAB
     Indication: RETINAL OEDEMA
  6. LUCENTIS [Suspect]
     Active Substance: RANIBIZUMAB
     Indication: DIABETIC EYE DISEASE
  7. ISTALOL [Concomitant]
     Active Substance: TIMOLOL MALEATE
     Route: 065
  8. ZYMAR [Concomitant]
     Active Substance: GATIFLOXACIN
  9. MOXEZA [Concomitant]
     Active Substance: MOXIFLOXACIN HYDROCHLORIDE
     Dosage: INSTILLED
     Route: 065
  10. BROMDAY [Concomitant]
     Active Substance: BROMFENAC SODIUM
     Dosage: INSTILLED
     Route: 065
  11. TETRAVISC [Concomitant]
     Active Substance: TETRACAINE HYDROCHLORIDE
     Dosage: INSTILLED
     Route: 065
  12. OFLOXACIN. [Concomitant]
     Active Substance: OFLOXACIN
     Route: 065

REACTIONS (14)
  - Death [Fatal]
  - Retinal depigmentation [Unknown]
  - Off label use [Unknown]
  - Retinal disorder [Unknown]
  - Lacrimation increased [Unknown]
  - Retinal haemorrhage [Unknown]
  - Macular degeneration [Unknown]
  - Diabetic retinopathy [Unknown]
  - Eye swelling [Recovering/Resolving]
  - Eye infection [Recovered/Resolved]
  - Eye discharge [Unknown]
  - Eye discharge [Unknown]
  - Malaise [Unknown]
  - Vision blurred [Unknown]

NARRATIVE: CASE EVENT DATE: 20110610
